FAERS Safety Report 7196905-1 (Version None)
Quarter: 2010Q4

REPORT INFORMATION
  Report Type: 
  Country: None (occurrence: None)
  Receive Date: 20101224
  Receipt Date: 20101216
  Transmission Date: 20110411
  Serious: Yes (Hospitalization)
  Sender: FDA-Public Use
  Company Number: US-BIOGENIDEC-2008BI004319

PATIENT
  Age: 49 Year
  Sex: Female

DRUGS (2)
  1. TYSABRI [Suspect]
     Indication: MULTIPLE SCLEROSIS
     Route: 042
     Dates: start: 20060911
  2. TYSABRI [Suspect]
     Route: 042
     Dates: start: 20080306, end: 20090326

REACTIONS (8)
  - AMNESIA [None]
  - BALANCE DISORDER [None]
  - DECUBITUS ULCER [None]
  - DEPRESSION [None]
  - GAIT DISTURBANCE [None]
  - INFECTED SKIN ULCER [None]
  - MULTIPLE SCLEROSIS RELAPSE [None]
  - SUICIDE ATTEMPT [None]
